FAERS Safety Report 10430760 (Version 2)
Quarter: 2014Q3

REPORT INFORMATION
  Report Type: Spontaneous
  Country: GB (occurrence: GB)
  Receive Date: 20140904
  Receipt Date: 20140924
  Transmission Date: 20150326
  Serious: Yes (Other)
  Sender: FDA-Public Use
  Company Number: PHHY2014GB108330

PATIENT
  Age: 39 Year
  Sex: Female
  Weight: 61 kg

DRUGS (3)
  1. PROPRANOLOL [Suspect]
     Active Substance: PROPRANOLOL\PROPRANOLOL HYDROCHLORIDE
     Indication: MIGRAINE
     Dosage: 40 MG, BID
     Route: 048
     Dates: start: 20120731, end: 20140718
  2. MIGARD [Concomitant]
     Indication: MIGRAINE
     Route: 065
  3. PROPRANOLOL [Suspect]
     Active Substance: PROPRANOLOL\PROPRANOLOL HYDROCHLORIDE
     Indication: HYPERTENSION

REACTIONS (5)
  - Palpitations [Recovered/Resolved]
  - Weight increased [Recovered/Resolved]
  - Drug ineffective [Recovering/Resolving]
  - Cardiac flutter [Recovering/Resolving]
  - Blood pressure increased [Recovered/Resolved]
